FAERS Safety Report 15011443 (Version 1)
Quarter: 2018Q2

REPORT INFORMATION
  Report Type: Spontaneous
  Country: US (occurrence: US)
  Receive Date: 20180614
  Receipt Date: 20180614
  Transmission Date: 20180711
  Serious: No
  Sender: FDA-Public Use
  Company Number: US-ASTRAZENECA-2018SE11356

PATIENT
  Weight: 8.4 kg

DRUGS (2)
  1. SYNAGIS [Suspect]
     Active Substance: PALIVIZUMAB
     Indication: LOWER RESPIRATORY TRACT INFECTION VIRAL
     Route: 030
     Dates: start: 20171121
  2. SYNAGIS [Suspect]
     Active Substance: PALIVIZUMAB
     Indication: LOWER RESPIRATORY TRACT INFECTION VIRAL
     Route: 030
     Dates: start: 20180116

REACTIONS (2)
  - Rash generalised [Not Recovered/Not Resolved]
  - Drug ineffective [Not Recovered/Not Resolved]
